FAERS Safety Report 8831361 (Version 2)
Quarter: 2013Q2

REPORT INFORMATION
  Report Type: Report from Study
  Country: JP (occurrence: JP)
  Receive Date: 20121008
  Receipt Date: 20130528
  Transmission Date: 20140414
  Serious: Yes (Other)
  Sender: FDA-Public Use
  Company Number: JP-VERTEX PHARMACEUTICAL INC.-2012-022096

PATIENT
  Age: 65 Year
  Sex: Male

DRUGS (19)
  1. VX-950 (TELAPREVIR) [Suspect]
     Indication: CHRONIC HEPATITIS C
     Dosage: 1500 MG, QD
     Route: 048
     Dates: start: 20120822, end: 20120906
  2. RIBAVIRIN [Concomitant]
     Dosage: 800 MG, QD
     Route: 048
     Dates: start: 20120822, end: 20120910
  3. PEGINTERFERON ALFA-2B [Concomitant]
     Dosage: 1.5 ?G/KG, QW
     Route: 058
     Dates: start: 20120822, end: 20120910
  4. LENDORMIN [Concomitant]
     Dosage: 0.25 MG, PRN
     Route: 048
  5. SILECE [Concomitant]
     Dosage: 1 MG, PRN
     Route: 048
  6. VOGLIBOSE [Concomitant]
     Dosage: .9 MG, QD
     Route: 048
  7. METGLUCO [Concomitant]
     Dosage: 750 MG, QD
     Route: 048
  8. ACTOS [Concomitant]
     Dosage: 30 MG, QD
     Route: 048
  9. NOVORAPID MIX [Concomitant]
     Dosage: 18 DF, QD
     Route: 058
  10. ATARAX-P [Concomitant]
     Dosage: 50 MG, QD
     Route: 048
     Dates: end: 20120903
  11. MUCODYNE [Concomitant]
     Dosage: 1500 MG, QD
     Route: 048
     Dates: end: 20120903
  12. PL [Concomitant]
     Dosage: 4 G, QD
     Route: 048
     Dates: end: 20120820
  13. ZETIA [Concomitant]
     Dosage: 10 MG, QD
     Route: 048
     Dates: end: 20120910
  14. BROVARIN [Concomitant]
     Dosage: .3 G, QD
     Route: 048
  15. SELENICA-R [Concomitant]
     Dosage: 400 MG, QD
     Route: 048
  16. DEPAS [Concomitant]
     Dosage: 1 MG, QD
     Route: 048
  17. VEGETAMIN B [Concomitant]
     Dosage: 1 DF, QD
     Route: 048
  18. MICOMBI COMBINATION [Concomitant]
     Dosage: 1 DF, QD
     Route: 048
     Dates: start: 20120826, end: 20120910
  19. IMPROMEN [Concomitant]
     Dosage: 1 MG, QD
     Route: 048

REACTIONS (2)
  - Renal impairment [Recovered/Resolved]
  - Hyperuricaemia [Recovered/Resolved]
